FAERS Safety Report 20999383 (Version 2)
Quarter: 2022Q3

REPORT INFORMATION
  Report Type: Spontaneous
  Country: US (occurrence: US)
  Receive Date: 20220623
  Receipt Date: 20220712
  Transmission Date: 20221027
  Serious: Yes (Death, Hospitalization)
  Sender: FDA-Public Use
  Company Number: US-TEVA-2022-US-2047634

PATIENT
  Age: 62 Year
  Sex: Female

DRUGS (5)
  1. EPINEPHRINE [Suspect]
     Active Substance: EPINEPHRINE
     Indication: Cardiac arrest
     Route: 065
  2. METHYLPREDNISOLONE [Suspect]
     Active Substance: METHYLPREDNISOLONE
     Indication: Cardiac arrest
     Dosage: 180 MILLIGRAM DAILY; THE PATIENT RECEIVED IV METHYLPREDNISOLONE 60MG BOLUS EVERY 8HOURS
     Route: 040
  3. PHENYLEPHRINE [Suspect]
     Active Substance: PHENYLEPHRINE HYDROCHLORIDE
     Indication: Cardiac arrest
     Route: 065
  4. VASOPRESSIN [Suspect]
     Active Substance: VASOPRESSIN
     Indication: Cardiac arrest
     Route: 065
  5. ANAGRELIDE [Concomitant]
     Active Substance: ANAGRELIDE
     Indication: Thrombocytosis
     Route: 065

REACTIONS (6)
  - Myocarditis [Fatal]
  - Haemophagocytic lymphohistiocytosis [Fatal]
  - Drug ineffective [Fatal]
  - Cardiomyopathy [Unknown]
  - Eosinophil count decreased [Unknown]
  - Cardiac arrest [Fatal]
